FAERS Safety Report 8307236-8 (Version None)
Quarter: 2012Q2

REPORT INFORMATION
  Report Type: 
  Country: None (occurrence: None)
  Receive Date: 20120424
  Receipt Date: 20120419
  Transmission Date: 20120825
  Serious: No
  Sender: FDA-Public Use
  Company Number: US-B.I. PHARMACEUTICALS,INC./RIDGEFIELD-2012-BP-07491BP

PATIENT
  Sex: Male

DRUGS (5)
  1. CRESTOR [Concomitant]
     Indication: BLOOD CHOLESTEROL
  2. SPIRIVA [Suspect]
     Indication: DYSPNOEA
     Dosage: 18 MCG
     Route: 055
     Dates: start: 20080101
  3. PLAVIX [Concomitant]
     Indication: CARDIAC DISORDER
  4. METOPROLOL XR [Concomitant]
     Indication: CARDIAC DISORDER
  5. ADVAIR DISKUS 100/50 [Concomitant]
     Indication: DYSPNOEA

REACTIONS (1)
  - POLLAKIURIA [None]
